FAERS Safety Report 4417837-5 (Version None)
Quarter: 2004Q3

REPORT INFORMATION
  Report Type: 
  Country: None (occurrence: None)
  Receive Date: 20040807
  Receipt Date: 20040727
  Transmission Date: 20050211
  Serious: Yes (Death)
  Sender: FDA-Public Use
  Company Number: US-MERCK-0407USA02445

PATIENT
  Age: 23 Year
  Sex: Male

DRUGS (5)
  1. [THERAPY UNSPECIFIED] [Concomitant]
     Route: 065
  2. AMPHOTERICIN B AND CHOLESTEROL AND DISTEAROYLPHOSPHATIDYLGLYCEROL AND [Concomitant]
     Indication: COCCIDIOIDOMYCOSIS
     Route: 065
     Dates: start: 20030901
  3. CANCIDAS [Suspect]
     Indication: COCCIDIOIDOMYCOSIS
     Route: 042
     Dates: start: 20030901, end: 20030901
  4. CANCIDAS [Suspect]
     Route: 042
     Dates: start: 20030901, end: 20031001
  5. FLUCONAZOLE [Concomitant]
     Indication: COCCIDIOIDOMYCOSIS
     Route: 048

REACTIONS (12)
  - ARTHRALGIA [None]
  - BACTERAEMIA [None]
  - CATHETER BACTERAEMIA [None]
  - CEREBRAL HAEMORRHAGE [None]
  - COCCIDIOIDOMYCOSIS [None]
  - COMA [None]
  - DEATH [None]
  - DISEASE RECURRENCE [None]
  - HYPOTENSION [None]
  - MITRAL VALVE DISEASE [None]
  - STAPHYLOCOCCAL BACTERAEMIA [None]
  - THERAPY NON-RESPONDER [None]
